FAERS Safety Report 9135838 (Version 1)
Quarter: 2013Q1

REPORT INFORMATION
  Report Type: Spontaneous
  Country: US (occurrence: US)
  Receive Date: 20130304
  Receipt Date: 20130304
  Transmission Date: 20140127
  Serious: Yes (Hospitalization)
  Sender: FDA-Public Use
  Company Number: US-GLAXOSMITHKLINE-A1014235A

PATIENT
  Sex: Female

DRUGS (2)
  1. BENLYSTA [Suspect]
     Indication: PRODUCT USED FOR UNKNOWN INDICATION
     Route: 042
  2. METHOTREXATE [Suspect]
     Indication: PRODUCT USED FOR UNKNOWN INDICATION
     Route: 065
     Dates: end: 201212

REACTIONS (12)
  - Infection [Unknown]
  - Malaise [Unknown]
  - Pain [Unknown]
  - Swelling [Unknown]
  - Herpes zoster [Unknown]
  - Localised infection [Unknown]
  - Blister [Unknown]
  - Scar [Not Recovered/Not Resolved]
  - Influenza [Unknown]
  - Hepatitis [Unknown]
  - Upper respiratory tract infection [Unknown]
  - Sinusitis [Unknown]
